FAERS Safety Report 8952524 (Version 3)
Quarter: 2013Q1

REPORT INFORMATION
  Report Type: Report from Study
  Country: CA (occurrence: CA)
  Receive Date: 20121205
  Receipt Date: 20130314
  Transmission Date: 20140127
  Serious: Yes (Hospitalization, Other)
  Sender: FDA-Public Use
  Company Number: CA-UCBSA-072093

PATIENT
  Age: 52 Year
  Sex: Female
  Weight: 79 kg

DRUGS (16)
  1. CIMZIA [Suspect]
     Indication: RHEUMATOID ARTHRITIS
     Route: 058
     Dates: start: 20110217, end: 201212
  2. FOLIC ACID [Concomitant]
     Indication: RHEUMATOID ARTHRITIS
     Route: 048
     Dates: start: 1995
  3. METHOTREXATE [Concomitant]
     Indication: RHEUMATOID ARTHRITIS
     Route: 048
     Dates: start: 1995
  4. METHOTREXATE [Concomitant]
     Indication: RHEUMATOID ARTHRITIS
     Dosage: UNKNOWN DOSE
     Dates: start: 2011
  5. PLAQUENIL [Concomitant]
     Indication: RHEUMATOID ARTHRITIS
     Route: 048
     Dates: start: 2006
  6. PLAQUENIL [Concomitant]
     Indication: RHEUMATOID ARTHRITIS
     Dosage: UNKNOWN DOSE
     Dates: start: 2011
  7. CELEBREX [Concomitant]
     Indication: RHEUMATOID ARTHRITIS
     Route: 048
  8. CELEBREX [Concomitant]
     Indication: RHEUMATOID ARTHRITIS
     Dosage: UNKNOWN DOSE
     Dates: start: 2011
  9. TENORMIN [Concomitant]
     Indication: HYPERTENSION
     Route: 048
  10. VALTREX [Concomitant]
     Indication: GENITAL HERPES
     Route: 048
  11. TAMOXIFEN [Concomitant]
     Indication: BREAST CANCER
     Route: 048
     Dates: start: 2006
  12. AMITRIPTYLINE [Concomitant]
     Indication: PAIN
     Route: 048
  13. ASAPHEN [Concomitant]
     Indication: PROPHYLAXIS
     Route: 048
  14. CLONIDINE [Concomitant]
     Indication: HYPERTENSION
     Dosage: 1 TIME EVERY 1 DAY
     Route: 048
  15. ALENDRONATE [Concomitant]
     Indication: OSTEOPOROSIS
     Route: 048
  16. STATEX [Concomitant]
     Indication: PAIN
     Route: 048

REACTIONS (1)
  - Spinal cord neoplasm [Recovering/Resolving]
